FAERS Safety Report 11292729 (Version 1)
Quarter: 2015Q3

REPORT INFORMATION
  Report Type: Spontaneous
  Country: AU (occurrence: AU)
  Receive Date: 20150722
  Receipt Date: 20150722
  Transmission Date: 20151125
  Serious: Yes (Life-Threatening)
  Sender: FDA-Public Use
  Company Number: AU-009507513-1507AUS006290

PATIENT
  Age: 58 Year
  Sex: Male
  Weight: 95 kg

DRUGS (1)
  1. ROCURONIUM BROMIDE. [Suspect]
     Active Substance: ROCURONIUM BROMIDE
     Dosage: 1 MG, PRN
     Route: 040
     Dates: start: 20150410, end: 20150410

REACTIONS (2)
  - Oxygen saturation decreased [Recovered/Resolved]
  - Hypotension [Recovered/Resolved]

NARRATIVE: CASE EVENT DATE: 20150410
